FAERS Safety Report 24956039 (Version 1)
Quarter: 2025Q1

REPORT INFORMATION
  Report Type: Spontaneous
  Country: US (occurrence: US)
  Receive Date: 20250211
  Receipt Date: 20250211
  Transmission Date: 20250409
  Serious: No
  Sender: TAKEDA
  Company Number: US-TAKEDA-2025TUS011787

PATIENT
  Sex: Male
  Weight: 65 kg

DRUGS (9)
  1. DEXILANT [Suspect]
     Active Substance: DEXLANSOPRAZOLE
     Indication: Hyperchlorhydria
     Dosage: 60 MILLIGRAM, QD
     Dates: start: 202411
  2. VERAPAMIL [Concomitant]
     Active Substance: VERAPAMIL HYDROCHLORIDE
  3. LYRICA [Concomitant]
     Active Substance: PREGABALIN
  4. POTASSIUM [Concomitant]
     Active Substance: POTASSIUM
  5. SYNTHROID [Concomitant]
     Active Substance: LEVOTHYROXINE SODIUM
  6. MELOXICAM [Concomitant]
     Active Substance: MELOXICAM
  7. ASPIRIN [Concomitant]
     Active Substance: ASPIRIN
  8. VITAMIN D [Concomitant]
     Active Substance: VITAMIN D NOS
  9. COLESTIPOL [Concomitant]
     Active Substance: COLESTIPOL
     Indication: Diarrhoea

REACTIONS (1)
  - Diarrhoea [Unknown]
